FAERS Safety Report 18861139 (Version 1)
Quarter: 2021Q1

REPORT INFORMATION
  Report Type: Spontaneous
  Country: US (occurrence: US)
  Receive Date: 20210208
  Receipt Date: 20210208
  Transmission Date: 20210420
  Serious: No
  Sender: FDA-Public Use
  Company Number: NVSC2021US026958

PATIENT
  Age: 83 Year
  Sex: Female

DRUGS (1)
  1. VOLTAREN [Suspect]
     Active Substance: DICLOFENAC SODIUM
     Indication: ARTHRITIS
     Dosage: 1 DF, BID (IN THE MORNING AND AT NIGHT BEFORE BED)
     Route: 065

REACTIONS (3)
  - Therapeutic response unexpected [Unknown]
  - Wrong technique in device usage process [Unknown]
  - Product use issue [Unknown]
